FAERS Safety Report 7097531-5 (Version None)
Quarter: 2010Q4

REPORT INFORMATION
  Report Type: 
  Country: None (occurrence: None)
  Receive Date: 20101111
  Receipt Date: 20101108
  Transmission Date: 20110411
  Serious: Yes (Hospitalization)
  Sender: FDA-Public Use
  Company Number: GB-MERCK-1010GBR00033

PATIENT
  Age: 75 Year
  Sex: Male

DRUGS (4)
  1. JANUVIA [Suspect]
     Route: 048
  2. ROPINIROLE [Concomitant]
     Route: 065
  3. BENSERAZIDE HYDROCHLORIDE AND LEVODOPA [Concomitant]
     Route: 065
  4. RASAGILINE MESYLATE [Concomitant]
     Route: 065

REACTIONS (3)
  - DYSPHAGIA [None]
  - MALAISE [None]
  - SEPSIS [None]
